FAERS Safety Report 8818952 (Version 2)
Quarter: 2012Q4

REPORT INFORMATION
  Report Type: 
  Country: FR (occurrence: FR)
  Receive Date: 20121001
  Receipt Date: 20121004
  Transmission Date: 20130627
  Serious: Yes (Other)
  Sender: FDA-Public Use
  Company Number: PHHY2012FR082477

PATIENT
  Age: 70 Year
  Sex: Female
  Weight: 90 kg

DRUGS (4)
  1. FEMARA [Suspect]
     Indication: BREAST CANCER
     Dosage: 2.5 mg, 1 tablet in the morning
     Dates: start: 20120105
  2. SELOKEN [Concomitant]
     Indication: ARRHYTHMIA
     Dosage: 50 mg, in the morning
  3. FENOFIBRATE [Concomitant]
     Indication: HYPERCHOLESTEROLAEMIA
     Dosage: UNK UKN, 1 Tablet in the morning
  4. LIPANTHYL [Concomitant]
     Dosage: 1 DF, daily
     Dates: start: 2011

REACTIONS (9)
  - Arthralgia [Not Recovered/Not Resolved]
  - Loss of control of legs [Unknown]
  - Joint stiffness [Unknown]
  - Sleep disorder [Unknown]
  - Pain in extremity [Unknown]
  - Fatigue [Unknown]
  - Nausea [Recovered/Resolved]
  - Myalgia [Not Recovered/Not Resolved]
  - Pruritus [Not Recovered/Not Resolved]
